FAERS Safety Report 4364851-4 (Version None)
Quarter: 2004Q2

REPORT INFORMATION
  Report Type: 
  Country: None (occurrence: None)
  Receive Date: 20040521
  Receipt Date: 20040512
  Transmission Date: 20050107
  Serious: Yes (Death, Hospitalization)
  Sender: FDA-Public Use
  Company Number: 2004-04-0036

PATIENT
  Age: 56 Year
  Sex: Male
  Weight: 85 kg

DRUGS (2)
  1. VIRAFERONPEG [Suspect]
     Indication: HEPATITIS C
     Dosage: 120 MCG SUBCUTANEOUS
     Route: 058
     Dates: start: 20040213, end: 20040322
  2. REBETOL [Suspect]
     Indication: HEPATITIS C
     Dosage: 1000 MG ORAL
     Route: 048
     Dates: start: 20040213, end: 20040322

REACTIONS (13)
  - BLOOD PH INCREASED [None]
  - CARDIAC ARREST [None]
  - DIARRHOEA [None]
  - DIFFICULTY IN WALKING [None]
  - ELECTROCARDIOGRAM ABNORMAL [None]
  - PCO2 DECREASED [None]
  - PLATELET COUNT DECREASED [None]
  - PO2 DECREASED [None]
  - PROTHROMBIN TIME PROLONGED [None]
  - PULMONARY HYPERTENSION [None]
  - PULMONARY OEDEMA [None]
  - RIGHT VENTRICULAR FAILURE [None]
  - VENOUS PRESSURE JUGULAR INCREASED [None]
